FAERS Safety Report 13329378 (Version 1)
Quarter: 2017Q1

REPORT INFORMATION
  Report Type: Spontaneous
  Country: US (occurrence: US)
  Receive Date: 20170313
  Receipt Date: 20170313
  Transmission Date: 20170428
  Serious: No
  Sender: FDA-Public Use
  Company Number: US-BAYER-2017-047764

PATIENT

DRUGS (3)
  1. MIRALAX [Suspect]
     Active Substance: POLYETHYLENE GLYCOL 3350
     Dosage: TID
     Dates: start: 20170307, end: 20170307
  2. MIRALAX [Suspect]
     Active Substance: POLYETHYLENE GLYCOL 3350
     Dosage: BID
     Dates: start: 20170306, end: 20170306
  3. MIRALAX [Suspect]
     Active Substance: POLYETHYLENE GLYCOL 3350
     Dosage: BID
     Dates: start: 20170308, end: 20170308

REACTIONS (5)
  - Product use issue [Unknown]
  - Muscle spasms [Not Recovered/Not Resolved]
  - Product use issue [Unknown]
  - Palpitations [Not Recovered/Not Resolved]
  - Product use issue [Unknown]

NARRATIVE: CASE EVENT DATE: 20170306
